FAERS Safety Report 11533402 (Version 1)
Quarter: 2015Q3

REPORT INFORMATION
  Report Type: Spontaneous
  Country: US (occurrence: US)
  Receive Date: 20150921
  Receipt Date: 20150921
  Transmission Date: 20151125
  Serious: No
  Sender: FDA-Public Use
  Company Number: US-B.I. PHARMACEUTICALS,INC./RIDGEFIELD-2015-BI-49264BP

PATIENT
  Age: 79 Year
  Sex: Female
  Weight: 71 kg

DRUGS (7)
  1. STIOLTO RESPIMAT [Suspect]
     Active Substance: OLODATEROL HYDROCHLORIDE\TIOTROPIUM BROMIDE MONOHYDRATE
     Indication: CHRONIC OBSTRUCTIVE PULMONARY DISEASE
     Dosage: 5 MCG
     Route: 055
     Dates: start: 20150805
  2. LOPRESSOR [Concomitant]
     Active Substance: METOPROLOL TARTRATE
     Indication: CARDIAC DISORDER
     Dosage: 25 MG
     Route: 048
     Dates: start: 2010
  3. ATIVAN [Concomitant]
     Active Substance: LORAZEPAM
     Indication: ANXIETY
     Dosage: 0.5 MG
     Route: 048
     Dates: start: 2008
  4. NASONEX [Concomitant]
     Active Substance: MOMETASONE FUROATE
     Indication: HYPERSENSITIVITY
     Dosage: FORMULATION: NASAL SPRAY, DOSE PER APPLICATION : 50 MCG, DAILY DOSE: 200 MCG
     Route: 055
  5. TAPAZOLE [Concomitant]
     Active Substance: METHIMAZOLE
     Indication: THYROID DISORDER
     Dosage: 20 MG
     Route: 048
  6. ZOCOR [Concomitant]
     Active Substance: SIMVASTATIN
     Indication: BLOOD CHOLESTEROL INCREASED
     Dosage: 20 MG
     Route: 048
     Dates: start: 201503
  7. LASIX [Concomitant]
     Active Substance: FUROSEMIDE
     Indication: FLUID RETENTION
     Route: 048

REACTIONS (4)
  - Back pain [Not Recovered/Not Resolved]
  - Pain in extremity [Not Recovered/Not Resolved]
  - Eye irritation [Not Recovered/Not Resolved]
  - Palpitations [Unknown]

NARRATIVE: CASE EVENT DATE: 20150807
